FAERS Safety Report 18516112 (Version 1)
Quarter: 2020Q4

REPORT INFORMATION
  Report Type: Spontaneous
  Country: US (occurrence: US)
  Receive Date: 20201118
  Receipt Date: 20201118
  Transmission Date: 20210114
  Serious: Yes (Other)
  Sender: FDA-Public Use
  Company Number: None

PATIENT
  Age: 86 Year
  Sex: Female
  Weight: 62.1 kg

DRUGS (18)
  1. PROBIOTIC ADVANCED ORAL [Concomitant]
  2. SIMVASTATIN 20MG ORAL [Concomitant]
  3. ASPIRIN 81MG ORAL [Concomitant]
  4. SUCRALFATE 1GM ORAL [Concomitant]
  5. RABEPRAZOLE 20MG ORAL [Concomitant]
  6. CALCIUM CARBONATE 600MG ORAL [Concomitant]
  7. VITAMIN C IMMUNE HEALTH 500MG ORAL [Concomitant]
  8. NORVASC 10MG ORAL [Concomitant]
  9. IMATINIB. [Suspect]
     Active Substance: IMATINIB MESYLATE
     Indication: CHRONIC MYELOID LEUKAEMIA
     Route: 048
     Dates: start: 20200327
  10. ACIPHEX 20MG ORAL [Concomitant]
  11. VITAMIN B12 1000MCG ORAL [Concomitant]
  12. CENTERUM WOMENS ORAL [Concomitant]
  13. DICYLOMINE 20MG ORAL [Concomitant]
  14. BENICAR 40MG ORAL [Concomitant]
  15. OLMESARTAN 20MG ORAL [Concomitant]
  16. VITAMIN D 25MCG ORAL [Concomitant]
  17. CLOPIDOGREL 75MG ORAL [Concomitant]
  18. HYDROCHLOROTHIAZIDE 25MG ORAL [Concomitant]

REACTIONS (1)
  - Diarrhoea [None]

NARRATIVE: CASE EVENT DATE: 20201117
